FAERS Safety Report 7338815-2 (Version None)
Quarter: 2011Q1

REPORT INFORMATION
  Report Type: 
  Country: None (occurrence: None)
  Receive Date: 20110308
  Receipt Date: 20110225
  Transmission Date: 20110831
  Serious: Yes (Life-Threatening, Hospitalization, Disabling, Other)
  Sender: FDA-Public Use
  Company Number: US-MERCK-1102USA00039

PATIENT
  Age: 59 Year
  Sex: Female

DRUGS (8)
  1. LISINOPRIL [Suspect]
     Indication: HYPERTENSION
     Route: 048
     Dates: start: 20101201, end: 20110131
  2. HYDRALAZINE [Concomitant]
     Route: 065
  3. INSULIN [Concomitant]
     Route: 065
  4. LASIX [Concomitant]
     Route: 065
  5. NORVASC [Concomitant]
     Route: 065
  6. LEVEMIR [Concomitant]
     Route: 065
  7. LOPRESSOR [Concomitant]
     Route: 065
  8. POTASSIUM CHLORIDE [Concomitant]
     Route: 065

REACTIONS (6)
  - CHOLELITHIASIS [None]
  - ABDOMINAL PAIN [None]
  - HEPATIC FAILURE [None]
  - NAUSEA [None]
  - MALAISE [None]
  - VOMITING [None]
